FAERS Safety Report 14965467 (Version 1)
Quarter: 2018Q2

REPORT INFORMATION
  Report Type: Spontaneous
  Country: US (occurrence: US)
  Receive Date: 20180601
  Receipt Date: 20180601
  Transmission Date: 20180711
  Serious: Yes (Other)
  Sender: FDA-Public Use
  Company Number: US-ANIPHARMA-2018-US-006873

PATIENT
  Age: 88 Year
  Sex: Male

DRUGS (3)
  1. ELIGARD [Suspect]
     Active Substance: LEUPROLIDE ACETATE
     Dosage: UNK
     Route: 065
     Dates: start: 20180308
  2. XTANDI [Suspect]
     Active Substance: ENZALUTAMIDE
     Dosage: 80MG ONCE DAILY
     Route: 048
     Dates: start: 20180308
  3. CASODEX [Suspect]
     Active Substance: BICALUTAMIDE
     Route: 065
     Dates: start: 20180308

REACTIONS (5)
  - Off label use [Unknown]
  - Urinary tract infection [Unknown]
  - Dysuria [Not Recovered/Not Resolved]
  - Back pain [Not Recovered/Not Resolved]
  - Metastases to bone [Unknown]

NARRATIVE: CASE EVENT DATE: 20170425
